FAERS Safety Report 18052864 (Version 1)
Quarter: 2020Q3

REPORT INFORMATION
  Report Type: Spontaneous
  Country: SE (occurrence: SE)
  Receive Date: 20200722
  Receipt Date: 20200722
  Transmission Date: 20201103
  Serious: Yes (Other)
  Sender: FDA-Public Use
  Company Number: SE-AMGEN-SWESP2020117782

PATIENT
  Age: 36 Year
  Sex: Female

DRUGS (16)
  1. TOPIRAMATE. [Concomitant]
     Active Substance: TOPIRAMATE
     Indication: PRODUCT USED FOR UNKNOWN INDICATION
     Dosage: 75 MG, QD (75 MG 1 G?NG DAGLIGEN P? KV?LLEN F?REBYGGANDE MOT MIGR?N.)
     Route: 065
     Dates: start: 20191202
  2. RIZATRIPTAN GLENMARK [Concomitant]
     Indication: PRODUCT USED FOR UNKNOWN INDICATION
     Dosage: MOT MIGR?N. 1 VID BEHOV. YTTERLIGARE 1ST EFTER 2H KAN TAS VB. MAX 4G?NGER/M?NAD. VID BEHOV.
     Route: 065
     Dates: start: 20200424
  3. PALEXIA [Concomitant]
     Active Substance: TAPENTADOL HYDROCHLORIDE
     Indication: PRODUCT USED FOR UNKNOWN INDICATION
     Dosage: 200 MG, QD (CONCENTRATION: 100 MG)(1 TABLETT 2 G?NGER DAGLIGEN MORFIN MOT KRONISK V?RK)
     Route: 065
     Dates: start: 20190607
  4. GABAPENTIN. [Concomitant]
     Active Substance: GABAPENTIN
     Indication: PRODUCT USED FOR UNKNOWN INDICATION
     Dosage: L TABLETT 2 G?NGER DAGLIGEN MOT NERVSM?RTA VID DISKBR?CK
     Route: 065
     Dates: start: 20190524
  5. LERGIGAN COMP [Concomitant]
     Active Substance: CAFFEINE\EPHEDRINE\PROMETHAZINE
     Indication: PRODUCT USED FOR UNKNOWN INDICATION
     Dosage: 1 TABLETT VID BEHOV MOT ILLAM?ENDE .. VID BEHOV.
     Route: 065
     Dates: start: 20190902
  6. PANODIL [Concomitant]
     Active Substance: ACETAMINOPHEN
     Indication: PRODUCT USED FOR UNKNOWN INDICATION
     Dosage: 1 TABLETT 3 G?NGER DAGLIGEN MOT V?RK.
     Route: 065
     Dates: start: 20200424
  7. ARCOXIA [Concomitant]
     Active Substance: ETORICOXIB
     Indication: PRODUCT USED FOR UNKNOWN INDICATION
     Dosage: 1 TABLETT 1 G?NG DAGLIGEN MOT V?RK.
     Route: 065
     Dates: start: 20200424
  8. DULOXETIN ACCORD [Concomitant]
     Dosage: 30 MG, QD (CONCENTRATION: 30 MG) (F?R NEDTRAPPNINGSF?RS?K. 1 KAPSEL 1 G?NG DAGLIGEN (TOTALDOS EFTER
     Route: 065
     Dates: start: 20191230
  9. LERGIGAN [PROMETHAZINE HYDROCHLORIDE] [Concomitant]
     Active Substance: PROMETHAZINE HYDROCHLORIDE
     Indication: PRODUCT USED FOR UNKNOWN INDICATION
     Dosage: 1 TABLETT VID BEHOV MOT ILLAM?ENDE. MAX 3 DAGLIGEN ..
     Route: 065
     Dates: start: 20191230
  10. PARAFLEX [Concomitant]
     Active Substance: CHLORZOXAZONE
     Indication: PRODUCT USED FOR UNKNOWN INDICATION
     Dosage: 1 TABLETT VID BEHOV. MUSKELAVSLAPPNANDE. (EJ SAMTIDIGT SOM NORGESIC) MAXDOS ?R 2ST 3 G?NGER DAGLIGEN
     Route: 065
     Dates: start: 20190902
  11. NORGESIC [ORPHENADRINE CITRATE;PARACETAMOL] [Concomitant]
     Indication: PRODUCT USED FOR UNKNOWN INDICATION
     Dosage: 1 TABLETT VID BEHOV VID SM?RTGENOMBROTT.. VID BEHOV.
     Route: 065
     Dates: start: 20190415
  12. PROPAVAN [Concomitant]
     Active Substance: PROPIOMAZINE
     Indication: PRODUCT USED FOR UNKNOWN INDICATION
     Dosage: 1?2 TABLETTER F?R S?MNEN VID BEHOV.
     Route: 065
     Dates: start: 20200424
  13. PALEXIA [Concomitant]
     Active Substance: TAPENTADOL HYDROCHLORIDE
     Indication: PRODUCT USED FOR UNKNOWN INDICATION
     Dosage: 1?2 TABLETT VID BEHOV
     Route: 065
     Dates: start: 20200424
  14. DULOXETIN ACCORD [Concomitant]
     Indication: PRODUCT USED FOR UNKNOWN INDICATION
     Dosage: 120 MG, QD (CONCENTRATION: 60 MG) (2ST P? MORGONEN. SM?RTMODULERANDE L?KEMEDEL)
     Route: 065
     Dates: start: 20190902
  15. AIMOVIG [Suspect]
     Active Substance: ERENUMAB-AOOE
     Indication: MIGRAINE PROPHYLAXIS
     Dosage: UNK
     Route: 065
     Dates: start: 20200605
  16. PALEXIA [Concomitant]
     Active Substance: TAPENTADOL HYDROCHLORIDE
     Dosage: (CONCENTRATION: 50 MG) F?R PLANERADE DOSMINSKNING (MOT 150+ 150 MG) CA I JULI
     Route: 065
     Dates: start: 20190607

REACTIONS (2)
  - Sinus tachycardia [Not Recovered/Not Resolved]
  - Migraine [Not Recovered/Not Resolved]

NARRATIVE: CASE EVENT DATE: 20200605
